FAERS Safety Report 8469340-3 (Version None)
Quarter: 2012Q2

REPORT INFORMATION
  Report Type: 
  Country: None (occurrence: None)
  Receive Date: 20120621
  Receipt Date: 20120621
  Transmission Date: 20120825
  Serious: Yes (Disabling)
  Sender: FDA-Public Use
  Company Number: None

PATIENT
  Sex: Male
  Weight: 61.2356 kg

DRUGS (1)
  1. AMITRIPTYLINE HCL [Suspect]
     Indication: MIGRAINE
     Dosage: 25 MLG TO 50 MLG. 1X DAY MOUTH
     Route: 048
     Dates: start: 20111101

REACTIONS (3)
  - VOMITING [None]
  - IMPAIRED GASTRIC EMPTYING [None]
  - HEADACHE [None]
